FAERS Safety Report 9354254 (Version 1)
Quarter: 2013Q2

REPORT INFORMATION
  Report Type: Other
  Country: ES (occurrence: ES)
  Receive Date: 20130618
  Receipt Date: 20130618
  Transmission Date: 20140414
  Serious: Yes (Other)
  Sender: FDA-Public Use
  Company Number: ES-PURDUE-USA-2013-0100980

PATIENT
  Age: 69 Year
  Sex: Female

DRUGS (1)
  1. TRAMADOL (SIMILAR TO NDA 21-745) [Suspect]
     Indication: ANALGESIC THERAPY
     Dosage: UNK
     Route: 048

REACTIONS (2)
  - Drug abuse [Recovered/Resolved]
  - Hallucination, auditory [Recovered/Resolved]
